FAERS Safety Report 6518039-9 (Version None)
Quarter: 2009Q4

REPORT INFORMATION
  Report Type: 
  Country: None (occurrence: None)
  Receive Date: 20091223
  Receipt Date: 20091223
  Transmission Date: 20100525
  Serious: No
  Sender: FDA-Public Use
  Company Number: None

PATIENT
  Age: 55 Year
  Sex: Male
  Weight: 122.5 kg

DRUGS (2)
  1. MOXIFLOXACIN HCL [Suspect]
     Indication: CHRONIC OBSTRUCTIVE PULMONARY DISEASE
     Dosage: 400 MG EVERY DAY IV
     Route: 042
     Dates: start: 20091125, end: 20091126
  2. MOXIFLOXACIN HCL [Suspect]
     Indication: CONDITION AGGRAVATED
     Dosage: 400 MG EVERY DAY IV
     Route: 042
     Dates: start: 20091125, end: 20091126

REACTIONS (1)
  - RASH ERYTHEMATOUS [None]
